FAERS Safety Report 5820672-4 (Version None)
Quarter: 2008Q3

REPORT INFORMATION
  Report Type: 
  Country: None (occurrence: None)
  Receive Date: 20080724
  Receipt Date: 20080204
  Transmission Date: 20090109
  Serious: No
  Sender: FDA-Public Use
  Company Number: A0707185A

PATIENT
  Age: 76 Year
  Sex: Male

DRUGS (7)
  1. AVANDIA [Suspect]
     Dosage: 4MG PER DAY
     Route: 048
     Dates: start: 20080101, end: 20080114
  2. GLYBURIDE [Concomitant]
  3. DIOVAN [Concomitant]
  4. CRESTOR [Concomitant]
  5. TRICOR [Concomitant]
  6. FUROSEMIDE [Concomitant]
  7. POTASSIUM CHLORIDE [Concomitant]

REACTIONS (1)
  - OEDEMA PERIPHERAL [None]
